FAERS Safety Report 7538936-5 (Version None)
Quarter: 2011Q2

REPORT INFORMATION
  Report Type: 
  Country: None (occurrence: None)
  Receive Date: 20110610
  Receipt Date: 20110310
  Transmission Date: 20111010
  Serious: Yes (Other)
  Sender: FDA-Public Use
  Company Number: US-BAYER-201015491NA

PATIENT
  Age: 52 Year
  Sex: Female
  Weight: 66 kg

DRUGS (73)
  1. MAGNEVIST [Suspect]
  2. GADOLINIUM IN UNSPECIFIED DRUG [Suspect]
  3. OMNISCAN [Suspect]
     Indication: NUCLEAR MAGNETIC RESONANCE IMAGING BRAIN
     Dosage: 20 ML, ONCE
     Dates: start: 20090903, end: 20090903
  4. ANTITHROMBOTIC AGENTS [Concomitant]
  5. DILANTIN [Concomitant]
  6. PARICALCITOL [Concomitant]
  7. FOLIC ACID [Concomitant]
  8. METHOTREXATE [Concomitant]
  9. OMNIPAQUE 140 [Concomitant]
     Indication: FISTULOGRAM
     Dosage: 117 ML, UNK
     Dates: start: 20071203, end: 20071203
  10. ISOVUE-128 [Concomitant]
     Dosage: 97 ML, UNK
     Dates: start: 20020217, end: 20020217
  11. HEPARIN [Concomitant]
  12. OPTIMARK [Suspect]
     Indication: NUCLEAR MAGNETIC RESONANCE IMAGING
  13. PROHANCE [Suspect]
     Indication: NUCLEAR MAGNETIC RESONANCE IMAGING
  14. DARBEPOETIN ALFA [Concomitant]
  15. FERRLECIT [Concomitant]
  16. OMNIPAQUE 140 [Concomitant]
     Indication: COMPUTERISED TOMOGRAM
     Dosage: 125 ML, UNK
     Dates: start: 20001023, end: 20001023
  17. ISOVUE-128 [Concomitant]
     Dosage: 100 ML, UNK
     Dates: start: 20070628, end: 20070628
  18. ISOVUE-128 [Concomitant]
     Dosage: 100 ML, UNK
     Dates: start: 20071016, end: 20071016
  19. TYLOX [Concomitant]
  20. GADOLINIUM IN UNSPECIFIED DRUG [Suspect]
     Dosage: UNK
     Dates: start: 20001019, end: 20001019
  21. GADOLINIUM IN UNSPECIFIED DRUG [Suspect]
     Dosage: UNK
     Dates: start: 20041121, end: 20041121
  22. IRON SUPPLEMENT [Concomitant]
  23. ANTIINFLAMMATORY/ANTIRHEUMATIC PRODUCTS [Concomitant]
  24. AMLODIPINE [Concomitant]
  25. QUETIAPINE [Concomitant]
  26. TOPROL-XL [Concomitant]
  27. PREDNISONE [Concomitant]
  28. ISOVUE-128 [Concomitant]
     Dosage: 100 ML, UNK
     Dates: start: 20060806, end: 20060806
  29. ISOVUE-128 [Concomitant]
     Dosage: 100 ML, UNK
     Dates: start: 20070709, end: 20070709
  30. ISOVUE-128 [Concomitant]
     Dosage: 100 ML, UNK
     Dates: start: 20070924, end: 20070924
  31. STEROIDS NOS [Concomitant]
  32. REGLAN [Concomitant]
  33. ZEMPLAR [Concomitant]
  34. EPOGEN [Concomitant]
  35. OMNIPAQUE 140 [Concomitant]
     Indication: VENOGRAM
     Dosage: 100 ML, UNK
     Dates: start: 20001011, end: 20001011
  36. GADOLINIUM IN UNSPECIFIED DRUG [Suspect]
     Dosage: UNK
     Dates: start: 20040521, end: 20040521
  37. GADOLINIUM IN UNSPECIFIED DRUG [Suspect]
     Dosage: UNK
     Dates: start: 20071218, end: 20071218
  38. VITAMINS NOS [Concomitant]
  39. IMMUNOSUPPRESSIVE AGENTS [Concomitant]
  40. LISINOPRIL [Concomitant]
  41. NORVASC [Concomitant]
  42. RENAGEL [Concomitant]
  43. OMNIPAQUE 140 [Concomitant]
     Dosage: 100 ML, UNK
     Dates: start: 20090602, end: 20090602
  44. CALCIUM CARBONATE [Concomitant]
  45. MAGNEVIST [Suspect]
     Indication: NUCLEAR MAGNETIC RESONANCE IMAGING
     Dosage: 17 ML, ONCE
     Dates: start: 20070807, end: 20070807
  46. GADOLINIUM IN UNSPECIFIED DRUG [Suspect]
     Dosage: UNK
     Dates: start: 20070624, end: 20070624
  47. GADOLINIUM IN UNSPECIFIED DRUG [Suspect]
     Dosage: UNK
     Dates: start: 20060306, end: 20060306
  48. ANTIBIOTICS [Concomitant]
  49. PREVACID [Concomitant]
  50. NEURONTIN [Concomitant]
  51. SERTRALINE HYDROCHLORIDE [Concomitant]
  52. OMNIPAQUE 140 [Concomitant]
     Indication: ANGIOGRAM
     Dosage: 10 ML, UNK
     Dates: start: 20000908, end: 20000908
  53. ISOVUE-128 [Concomitant]
     Indication: ANGIOGRAM
     Dosage: 100 ML, UNK
     Dates: start: 20060519, end: 20060519
  54. XANAX [Concomitant]
  55. VICODIN [Concomitant]
  56. GADOLINIUM IN UNSPECIFIED DRUG [Suspect]
     Dosage: UNK
     Dates: start: 20000908, end: 20000908
  57. GADOLINIUM IN UNSPECIFIED DRUG [Suspect]
     Dosage: UNK
     Dates: start: 20080813, end: 20080813
  58. MULTIHANCE [Suspect]
     Indication: NUCLEAR MAGNETIC RESONANCE IMAGING
  59. BLOOD PRESSURE MEDICATION (NOS) [Concomitant]
  60. PHOSLO [Concomitant]
  61. OMNIPAQUE 140 [Concomitant]
     Dosage: UNK
     Dates: start: 20080930, end: 20080930
  62. ISOVUE-128 [Concomitant]
     Indication: COMPUTERISED TOMOGRAM HEAD
     Dosage: 100 ML, UNK
     Dates: start: 20050804, end: 20050804
  63. ISOVUE-128 [Concomitant]
     Dosage: 140 ML, UNK
     Dates: start: 20070209, end: 20070209
  64. ISOVUE-128 [Concomitant]
     Dosage: 100 ML, UNK
     Dates: start: 20071025, end: 20071025
  65. ARANESP [Concomitant]
  66. GADOLINIUM IN UNSPECIFIED DRUG [Suspect]
     Dosage: UNK
     Dates: start: 20020330, end: 20020330
  67. OMNISCAN [Suspect]
     Indication: NUCLEAR MAGNETIC RESONANCE IMAGING
     Dosage: 15 ML, ONCE
     Dates: start: 20050811, end: 20050811
  68. NEPHROCAPS [Concomitant]
  69. PLAVIX [Concomitant]
  70. ZOLPIDEM [Concomitant]
  71. OMNIPAQUE 140 [Concomitant]
     Dosage: 100 ML, UNK
     Dates: start: 20060111, end: 20060111
  72. ISOVUE-128 [Concomitant]
     Indication: COMPUTERISED TOMOGRAM
     Dosage: 120 ML, UNK
     Dates: start: 20020114, end: 20020114
  73. HYDROCODONE BITARTRATE [Concomitant]

REACTIONS (27)
  - JOINT STIFFNESS [None]
  - SKIN HYPERPIGMENTATION [None]
  - FIBROSIS [None]
  - JOINT SWELLING [None]
  - SKIN HYPERTROPHY [None]
  - SKIN WARM [None]
  - SKIN EXFOLIATION [None]
  - ARTHRALGIA [None]
  - RENAL INJURY [None]
  - PAIN OF SKIN [None]
  - SKIN FIBROSIS [None]
  - PAIN [None]
  - SKIN TIGHTNESS [None]
  - MUSCULAR WEAKNESS [None]
  - ERYTHEMA [None]
  - SCAR [None]
  - MOBILITY DECREASED [None]
  - SKIN INDURATION [None]
  - DISCOMFORT [None]
  - DEFORMITY [None]
  - DRY SKIN [None]
  - JOINT RANGE OF MOTION DECREASED [None]
  - BONE PAIN [None]
  - NEPHROGENIC SYSTEMIC FIBROSIS [None]
  - PAIN IN EXTREMITY [None]
  - OEDEMA PERIPHERAL [None]
  - GENERAL PHYSICAL HEALTH DETERIORATION [None]
